FAERS Safety Report 4463388-1 (Version None)
Quarter: 2004Q3

REPORT INFORMATION
  Report Type: 
  Country: None (occurrence: None)
  Receive Date: 20040928
  Receipt Date: 20040913
  Transmission Date: 20050211
  Serious: Yes (Other)
  Sender: FDA-Public Use
  Company Number: A0524358A

PATIENT
  Age: 30 Year
  Sex: Male
  Weight: 124.7392 kg

DRUGS (2)
  1. BUPROPION HYDROCHLORIDE TABLET-CONTROLLED RELEASE (BUPROPION HYDROCHLO [Suspect]
     Indication: DEPRESSION
     Dosage: 150 MG/ PER DAY/ ORAL
     Route: 048
     Dates: start: 20040722, end: 20040724
  2. ATENOLOL [Concomitant]

REACTIONS (4)
  - DIZZINESS [None]
  - LOSS OF CONSCIOUSNESS [None]
  - SYNCOPE [None]
  - VOMITING [None]
